FAERS Safety Report 24760875 (Version 1)
Quarter: 2024Q4

REPORT INFORMATION
  Report Type: Spontaneous
  Country: US (occurrence: US)
  Receive Date: 20241220
  Receipt Date: 20241220
  Transmission Date: 20250115
  Serious: No
  Sender: ABBVIE
  Company Number: US-ABBVIE-6046691

PATIENT
  Age: 87 Year
  Sex: Female

DRUGS (2)
  1. ARMOUR THYROID [Suspect]
     Active Substance: THYROID, PORCINE
     Indication: Thyroid operation
     Route: 048
     Dates: start: 1999
  2. ARMOUR THYROID [Suspect]
     Active Substance: THYROID, PORCINE
     Indication: Thyroid operation
     Route: 048
     Dates: start: 1999

REACTIONS (3)
  - Mental impairment [Unknown]
  - Off label use [Unknown]
  - Anger [Unknown]
